FAERS Safety Report 26092321 (Version 1)
Quarter: 2025Q4

REPORT INFORMATION
  Report Type: Spontaneous
  Country: EU (occurrence: EU)
  Receive Date: 20251126
  Receipt Date: 20251126
  Transmission Date: 20260117
  Serious: Yes (Life-Threatening)
  Sender: TEVA
  Company Number: None

PATIENT
  Age: 58 Year
  Sex: Male
  Weight: 65 kg

DRUGS (4)
  1. FUROSEMIDE [Suspect]
     Active Substance: FUROSEMIDE
     Indication: Essential hypertension
     Route: 048
     Dates: end: 20251023
  2. BISOPROLOL [Suspect]
     Active Substance: BISOPROLOL
     Indication: Essential hypertension
     Dosage: BISOPROLOL FUMARATE
     Route: 048
     Dates: end: 20251023
  3. ENTRESTO [Suspect]
     Active Substance: SACUBITRIL\VALSARTAN
     Indication: Dilated cardiomyopathy
     Dosage: 97 MG/103 MG
     Route: 048
     Dates: end: 20251023
  4. ALDACTONE [Suspect]
     Active Substance: SPIRONOLACTONE
     Indication: Essential hypertension
     Dosage: SCORED
     Route: 048
     Dates: end: 20251023

REACTIONS (2)
  - Acute kidney injury [Recovered/Resolved]
  - Hypotension [Recovered/Resolved]

NARRATIVE: CASE EVENT DATE: 20251022
